FAERS Safety Report 14355670 (Version 1)
Quarter: 2018Q1

REPORT INFORMATION
  Report Type: Spontaneous
  Country: FR (occurrence: FR)
  Receive Date: 20180105
  Receipt Date: 20180105
  Transmission Date: 20180509
  Serious: Yes (Other)
  Sender: FDA-Public Use
  Company Number: FR-MERCK KGAA-2039461

PATIENT
  Sex: Female

DRUGS (1)
  1. NOVOTHYROX [Suspect]
     Active Substance: LEVOTHYROXINE SODIUM
     Indication: PRODUCT USED FOR UNKNOWN INDICATION
     Dates: start: 20170608

REACTIONS (18)
  - Insomnia [Unknown]
  - Fatigue [Unknown]
  - Amnesia [Unknown]
  - Pain [Unknown]
  - Chest pain [Unknown]
  - Headache [Unknown]
  - Hot flush [Unknown]
  - Blood pressure increased [Unknown]
  - Hepatic infection [Unknown]
  - Tendonitis [Unknown]
  - Palpitations [Unknown]
  - Dyspnoea [Unknown]
  - Urinary tract infection [Unknown]
  - Nausea [Unknown]
  - Balance disorder [Unknown]
  - Vertigo [Unknown]
  - Alopecia [Unknown]
  - Gait disturbance [Unknown]

NARRATIVE: CASE EVENT DATE: 2017
